FAERS Safety Report 9777543 (Version 3)
Quarter: 2015Q1

REPORT INFORMATION
  Report Type: Spontaneous
  Country: FR (occurrence: FR)
  Receive Date: 20131222
  Receipt Date: 20140128
  Transmission Date: 20150721
  Serious: Yes (Hospitalization)
  Sender: FDA-Public Use
  Company Number: FR-US-EMD SERONO, INC.-7257533

PATIENT
  Sex: Female

DRUGS (4)
  1. DECAPEPTYL [Suspect]
     Active Substance: TRIPTORELIN ACETATE
     Indication: IN VITRO FERTILISATION
     Route: 030
     Dates: start: 201306
  2. OVITRELLE [Suspect]
     Active Substance: CHORIOGONADOTROPIN ALFA
     Indication: IN VITRO FERTILISATION
     Route: 058
     Dates: start: 20130702
  3. GONAL-F [Suspect]
     Active Substance: FOLLITROPIN
     Indication: IN VITRO FERTILISATION
     Dosage: 150IU FOR 6 DAYS AND 112.5IU FOR 4 DAYS
     Route: 058
     Dates: start: 20130621
  4. GONAL-F [Suspect]
     Active Substance: FOLLITROPIN
     Route: 058
     Dates: end: 20130630

REACTIONS (3)
  - Ascites [Recovered/Resolved]
  - Ovarian hyperstimulation syndrome [Recovered/Resolved]
  - Pleural effusion [Recovered/Resolved]

NARRATIVE: CASE EVENT DATE: 20130716
